FAERS Safety Report 14033258 (Version 1)
Quarter: 2017Q4

REPORT INFORMATION
  Report Type: Spontaneous
  Country: US (occurrence: US)
  Receive Date: 20171002
  Receipt Date: 20171002
  Transmission Date: 20180321
  Serious: Yes (Hospitalization)
  Sender: FDA-Public Use
  Company Number: None

PATIENT
  Age: 86 Year
  Sex: Male
  Weight: 87.4 kg

DRUGS (15)
  1. FUROSEMIDE. [Concomitant]
     Active Substance: FUROSEMIDE
  2. LANTANOPROST [Concomitant]
     Active Substance: LATANOPROST
  3. FLONASE [Concomitant]
     Active Substance: FLUTICASONE PROPIONATE
  4. TYLENOL WITH CODEINE [Concomitant]
     Active Substance: ACETAMINOPHEN\CODEINE PHOSPHATE
  5. DICLOFENAC [Concomitant]
     Active Substance: DICLOFENAC
  6. METOPROLOL TARTRATE. [Concomitant]
     Active Substance: METOPROLOL TARTRATE
  7. TIMOLOL XE [Concomitant]
     Active Substance: TIMOLOL
  8. ACETAMINOPHEN. [Concomitant]
     Active Substance: ACETAMINOPHEN
  9. XTANDI [Suspect]
     Active Substance: ENZALUTAMIDE
     Indication: PROSTATE CANCER
     Route: 048
     Dates: start: 20170828, end: 20171001
  10. OMEPRAZOLE. [Concomitant]
     Active Substance: OMEPRAZOLE
  11. WARFARIN [Concomitant]
     Active Substance: WARFARIN
  12. ROPINIROLE. [Concomitant]
     Active Substance: ROPINIROLE
  13. FENTANYL. [Concomitant]
     Active Substance: FENTANYL
  14. SYNTHROID [Concomitant]
     Active Substance: LEVOTHYROXINE SODIUM
  15. TAMSULOSIN [Concomitant]
     Active Substance: TAMSULOSIN

REACTIONS (5)
  - Pain [None]
  - Asthenia [None]
  - Peripheral swelling [None]
  - Condition aggravated [None]
  - Fall [None]

NARRATIVE: CASE EVENT DATE: 20171001
